FAERS Safety Report 8414226-3 (Version None)
Quarter: 2012Q2

REPORT INFORMATION
  Report Type: 
  Country: None (occurrence: None)
  Receive Date: 20120605
  Receipt Date: 20120522
  Transmission Date: 20120825
  Serious: No
  Sender: FDA-Public Use
  Company Number: US-ASTRAZENECA-2012SE33279

PATIENT
  Age: 57 Year
  Sex: Female
  Weight: 75.8 kg

DRUGS (4)
  1. NEXIUM [Suspect]
     Route: 048
     Dates: start: 20110101
  2. NEXIUM [Suspect]
     Route: 048
  3. OTHER MEDICATIONS SUCH AS SUPPLEMENTS [Concomitant]
  4. PRILOSEC OTC [Suspect]
     Route: 048

REACTIONS (2)
  - DRUG INEFFECTIVE [None]
  - OFF LABEL USE [None]
